FAERS Safety Report 17657099 (Version 4)
Quarter: 2020Q2

REPORT INFORMATION
  Report Type: Spontaneous
  Country: US (occurrence: US)
  Receive Date: 20200410
  Receipt Date: 20200527
  Transmission Date: 20200713
  Serious: Yes (Hospitalization, Other)
  Sender: FDA-Public Use
  Company Number: US-GILEAD-2020-0457488

PATIENT
  Age: 61 Year
  Sex: Female
  Weight: 62.1 kg

DRUGS (21)
  1. PROTONIX [Concomitant]
     Active Substance: PANTOPRAZOLE SODIUM
  2. DIFLUCAN [Concomitant]
     Active Substance: FLUCONAZOLE
  3. FLUDARABINE [Concomitant]
     Active Substance: FLUDARABINE PHOSPHATE
  4. VANCOCIN [Concomitant]
     Active Substance: VANCOMYCIN HYDROCHLORIDE
  5. BENADRYL [Concomitant]
     Active Substance: DIPHENHYDRAMINE HYDROCHLORIDE
  6. CYTOXAN [Concomitant]
     Active Substance: CYCLOPHOSPHAMIDE
  7. CARDENE [Concomitant]
     Active Substance: NICARDIPINE HYDROCHLORIDE
  8. YESCARTA [Suspect]
     Active Substance: AXICABTAGENE CILOLEUCEL
     Indication: B-CELL LYMPHOMA
     Dosage: UNK
     Route: 042
     Dates: start: 20200304, end: 20200304
  9. YESCARTA [Suspect]
     Active Substance: AXICABTAGENE CILOLEUCEL
     Indication: NON-HODGKIN^S LYMPHOMA
  10. NORVASC [Concomitant]
     Active Substance: AMLODIPINE BESYLATE
  11. TYLENOL [Concomitant]
     Active Substance: ACETAMINOPHEN
  12. K-DUR [Concomitant]
     Active Substance: POTASSIUM CHLORIDE
  13. SODIUM CHLORIDE. [Concomitant]
     Active Substance: SODIUM CHLORIDE
  14. LASIX [Concomitant]
     Active Substance: FUROSEMIDE
  15. CLARITIN [Concomitant]
     Active Substance: LORATADINE
  16. LEVAQUIN [Concomitant]
     Active Substance: LEVOFLOXACIN
  17. THIAMINE. [Concomitant]
     Active Substance: THIAMINE
  18. TENORMIN [Concomitant]
     Active Substance: ATENOLOL
  19. DECADRON [Concomitant]
     Active Substance: DEXAMETHASONE
  20. MAXIPIME [Concomitant]
     Active Substance: CEFEPIME HYDROCHLORIDE
  21. ZOVIRAX [Concomitant]
     Active Substance: ACYCLOVIR

REACTIONS (1)
  - Immune effector cell-associated neurotoxicity syndrome [Recovered/Resolved]

NARRATIVE: CASE EVENT DATE: 20200315
